FAERS Safety Report 25220132 (Version 1)
Quarter: 2025Q2

REPORT INFORMATION
  Report Type: Spontaneous
  Country: US (occurrence: None)
  Receive Date: 20250418
  Receipt Date: 20250418
  Transmission Date: 20250716
  Serious: Yes (Hospitalization, Disabling, Other)
  Sender: FDA-CTU
  Company Number: None

PATIENT
  Age: 80 Year
  Sex: Female
  Weight: 78.75 kg

DRUGS (7)
  1. HYDROXYZINE HYDROCHLORIDE [Suspect]
     Active Substance: HYDROXYZINE HYDROCHLORIDE
     Indication: Anxiety
     Dosage: EVERY 6 HOURS ORAL
     Route: 048
     Dates: start: 20250303, end: 20250307
  2. HYDROXYZINE HYDROCHLORIDE [Suspect]
     Active Substance: HYDROXYZINE HYDROCHLORIDE
     Indication: Stress
  3. CARVEDILOL [Concomitant]
     Active Substance: CARVEDILOL
  4. Daily multivitami [Concomitant]
  5. VITAMIN D NOS [Concomitant]
     Active Substance: CHOLECALCIFEROL\ERGOCALCIFEROL
  6. Omega [Concomitant]
  7. Citrus Bergamont [Concomitant]

REACTIONS (1)
  - Tardive dyskinesia [None]

NARRATIVE: CASE EVENT DATE: 20250303
